FAERS Safety Report 8429858-6 (Version None)
Quarter: 2012Q2

REPORT INFORMATION
  Report Type: 
  Country: None (occurrence: None)
  Receive Date: 20120612
  Receipt Date: 20120530
  Transmission Date: 20120825
  Serious: No
  Sender: FDA-Public Use
  Company Number: US-ASTRAZENECA-2012SE36278

PATIENT
  Age: 71 Year
  Sex: Female

DRUGS (2)
  1. CHEMO PILLS [Suspect]
     Route: 065
  2. FASLODEX [Suspect]
     Indication: BREAST CANCER
     Route: 030

REACTIONS (4)
  - ARTHRITIS [None]
  - PNEUMONIA [None]
  - HEAT STROKE [None]
  - BRONCHITIS [None]
